FAERS Safety Report 16507588 (Version 1)
Quarter: 2019Q3

REPORT INFORMATION
  Report Type: Spontaneous
  Country: US (occurrence: US)
  Receive Date: 20190521
  Receipt Date: 20190521
  Transmission Date: 20191004
  Serious: No
  Sender: FDA-Public Use
  Company Number: None

PATIENT
  Sex: Female

DRUGS (2)
  1. PREDNISONE 5MG [Suspect]
     Active Substance: PREDNISONE
     Indication: LIVER TRANSPLANT
     Route: 048
     Dates: start: 20150425
  2. PREDNISONE 5MG [Suspect]
     Active Substance: PREDNISONE
     Indication: PANCREAS TRANSPLANT
     Route: 048
     Dates: start: 20150425

REACTIONS (1)
  - Colon cancer [None]
